FAERS Safety Report 10203617 (Version 2)
Quarter: 2014Q2

REPORT INFORMATION
  Report Type: Spontaneous
  Country: DE (occurrence: None)
  Receive Date: 20140523
  Receipt Date: 20140604
  Transmission Date: 20141212
  Serious: Yes (Other)
  Sender: FDA-Public Use
  Company Number: AUR-APL-2014-05974

PATIENT
  Age: 1 Day
  Sex: Male
  Weight: 1.97 kg

DRUGS (1)
  1. QUETIAPINE [Suspect]
     Indication: SCHIZOPHRENIA, PARANOID TYPE
     Route: 064

REACTIONS (13)
  - Maternal drugs affecting foetus [None]
  - Caesarean section [None]
  - Low birth weight baby [None]
  - Premature baby [None]
  - Neonatal respiratory distress syndrome [None]
  - Anaemia neonatal [None]
  - Feeding disorder neonatal [None]
  - Temperature regulation disorder [None]
  - Hypotonia neonatal [None]
  - Drug level increased [None]
  - Foetal growth restriction [None]
  - Foetal exposure during pregnancy [None]
  - Antipsychotic drug level above therapeutic [None]
